FAERS Safety Report 24763545 (Version 3)
Quarter: 2025Q1

REPORT INFORMATION
  Report Type: Report from Study
  Country: CA (occurrence: CA)
  Receive Date: 20241223
  Receipt Date: 20250123
  Transmission Date: 20250409
  Serious: Yes (Hospitalization, Other)
  Sender: CSL BEHRING
  Company Number: CA-BEH-2024187272

PATIENT
  Age: 1 Year
  Sex: Male
  Weight: 22 kg

DRUGS (3)
  1. HIZENTRA [Suspect]
     Active Substance: HUMAN IMMUNOGLOBULIN G
     Indication: Primary immunodeficiency syndrome
     Dosage: 1 G, QW
     Route: 065
     Dates: start: 20241206
  2. PREVACID [Concomitant]
     Active Substance: LANSOPRAZOLE
  3. EMLA [Concomitant]
     Active Substance: LIDOCAINE\PRILOCAINE
     Route: 065

REACTIONS (20)
  - Hospitalisation [Unknown]
  - Pneumonia [Unknown]
  - Gastroenteritis [Unknown]
  - Pyrexia [Unknown]
  - Rhinorrhoea [Unknown]
  - Constipation [Unknown]
  - Crying [Unknown]
  - Skin plaque [Unknown]
  - Infusion site oedema [Unknown]
  - Infusion site erythema [Unknown]
  - Fatigue [Unknown]
  - Crying [Unknown]
  - Injection site erythema [Unknown]
  - Injection site oedema [Unknown]
  - Swelling [Recovered/Resolved]
  - Erythema [Recovered/Resolved]
  - Ear infection [Unknown]
  - Pyrexia [Unknown]
  - Accidental exposure to product [Unknown]
  - Accidental exposure to product [Unknown]

NARRATIVE: CASE EVENT DATE: 20241206
